FAERS Safety Report 12718800 (Version 3)
Quarter: 2016Q4

REPORT INFORMATION
  Report Type: Spontaneous
  Country: US (occurrence: US)
  Receive Date: 20160906
  Receipt Date: 20161018
  Transmission Date: 20170207
  Serious: No
  Sender: FDA-Public Use
  Company Number: US-GLAXOSMITHKLINE-US2016128077

PATIENT
  Sex: Male
  Weight: 102.49 kg

DRUGS (1)
  1. TANZEUM [Suspect]
     Active Substance: ALBIGLUTIDE
     Indication: DIABETES MELLITUS
     Dosage: UNK , U
     Route: 042
     Dates: start: 201603

REACTIONS (2)
  - Underdose [Unknown]
  - Device use error [Unknown]
